FAERS Safety Report 8421184-4 (Version None)
Quarter: 2012Q2

REPORT INFORMATION
  Report Type: 
  Country: None (occurrence: None)
  Receive Date: 20120608
  Receipt Date: 20120606
  Transmission Date: 20120825
  Serious: Yes (Death)
  Sender: FDA-Public Use
  Company Number: US-CELGENEUS-163-21880-12051931

PATIENT
  Sex: Female

DRUGS (16)
  1. ALBUTEROL [Concomitant]
     Dosage: 90 MICROGRAM
     Route: 065
  2. CALCIUM [Concomitant]
     Dosage: 500 MILLIGRAM
     Route: 048
  3. POTASSIUM [Concomitant]
     Dosage: 75 MILLIGRAM
     Route: 048
  4. SPORANOX [Concomitant]
     Dosage: 100 MILLIGRAM
     Route: 048
  5. ALLEGRA [Concomitant]
     Dosage: 30 MILLIGRAM
     Route: 048
  6. CITALOPRAM HYDROBROMIDE [Concomitant]
     Dosage: 40 MILLIGRAM
     Route: 048
  7. IRON [Concomitant]
     Dosage: 18 MILLIGRAM
     Route: 048
  8. SPIRIVA [Concomitant]
     Route: 055
  9. VITAMIN D [Concomitant]
     Dosage: 400
     Route: 048
  10. PANTOPRAZOLE [Concomitant]
     Dosage: 20 MILLIGRAM
     Route: 048
  11. CRESTOR [Concomitant]
     Dosage: 10 MILLIGRAM
     Route: 048
  12. HCTZ/TRIAMT [Concomitant]
     Dosage: 25-50MG
     Route: 048
  13. SINGULAIR [Concomitant]
     Dosage: 10 MILLIGRAM
     Route: 048
  14. XANAX [Concomitant]
     Dosage: .25 MILLIGRAM
     Route: 048
  15. REVLIMID [Suspect]
     Route: 048
     Dates: start: 20091001
  16. FORADIL [Concomitant]
     Dosage: 10 MILLIGRAM
     Route: 048

REACTIONS (2)
  - CHRONIC OBSTRUCTIVE PULMONARY DISEASE [None]
  - RESPIRATORY FAILURE [None]
